FAERS Safety Report 6373999-4 (Version None)
Quarter: 2009Q3

REPORT INFORMATION
  Report Type: 
  Country: None (occurrence: None)
  Receive Date: 20090922
  Receipt Date: 20090922
  Transmission Date: 20100115
  Serious: Yes (Disabling)
  Sender: FDA-Public Use
  Company Number: None

PATIENT
  Age: 74 Year
  Sex: Female
  Weight: 82.5547 kg

DRUGS (2)
  1. CIPROFLOXACIN [Suspect]
     Indication: CYSTITIS
     Dosage: 2- 500 MG TABLETS, 9 HOURS APART PERIARTICULAR
     Route: 052
     Dates: start: 20090904, end: 20090907
  2. CIPROFLOXACIN [Suspect]
     Indication: KIDNEY INFECTION
     Dosage: 2- 500 MG TABLETS, 9 HOURS APART PERIARTICULAR
     Route: 052
     Dates: start: 20090904, end: 20090907

REACTIONS (3)
  - GAIT DISTURBANCE [None]
  - JOINT SWELLING [None]
  - TENDON PAIN [None]
